FAERS Safety Report 10252404 (Version 1)
Quarter: 2014Q2

REPORT INFORMATION
  Report Type: Spontaneous
  Country: US (occurrence: US)
  Receive Date: 20140623
  Receipt Date: 20140623
  Transmission Date: 20141212
  Serious: Yes (Other)
  Sender: FDA-Public Use
  Company Number: US-BAYER-2014-091412

PATIENT
  Age: 31 Year
  Sex: Female
  Weight: 95 kg

DRUGS (4)
  1. OCELLA [Suspect]
     Indication: CONTRACEPTION
     Dosage: UNK
     Dates: start: 2011, end: 2013
  2. FISH OIL [Concomitant]
     Dosage: UNK
     Route: 048
     Dates: start: 201301
  3. FLAXSEED OIL [Concomitant]
     Dosage: UNK
     Route: 048
     Dates: start: 201301
  4. VITAMIN C [Concomitant]
     Dosage: UNK
     Route: 048
     Dates: start: 2008

REACTIONS (4)
  - Deep vein thrombosis [None]
  - Hepatic steatosis [None]
  - Hepatic function abnormal [None]
  - Post thrombotic syndrome [None]
